FAERS Safety Report 4737015-X (Version None)
Quarter: 2005Q3

REPORT INFORMATION
  Report Type: 
  Country: None (occurrence: None)
  Receive Date: 20050804
  Receipt Date: 20050722
  Transmission Date: 20060218
  Serious: Yes (Other)
  Sender: FDA-Public Use
  Company Number: A-CH2005-10101

PATIENT
  Sex: Male

DRUGS (1)
  1. TRACLEER [Suspect]
     Indication: PULMONARY HYPERTENSION
     Dosage: 62.5 + 31.25 MG, ORAL
     Route: 048
     Dates: start: 20050522

REACTIONS (4)
  - AGGRESSION [None]
  - AGITATION [None]
  - DELUSION [None]
  - PSYCHOTIC DISORDER [None]
